FAERS Safety Report 18966541 (Version 4)
Quarter: 2021Q2

REPORT INFORMATION
  Report Type: Spontaneous
  Country: CO (occurrence: CO)
  Receive Date: 20210304
  Receipt Date: 20210623
  Transmission Date: 20210717
  Serious: No
  Sender: FDA-Public Use
  Company Number: CO-AMGEN-COLSP2021029486

PATIENT

DRUGS (5)
  1. PEGYLATED LIPOSOMAL DOXORUBICIN [Concomitant]
     Active Substance: DOXORUBICIN
     Indication: KAPOSI^S SARCOMA
     Dosage: UNK
     Route: 065
  2. NEULASTA [Suspect]
     Active Substance: PEGFILGRASTIM
     Indication: PRODUCT USED FOR UNKNOWN INDICATION
     Dosage: 6 MILLIGRAM
     Route: 058
  3. NEULASTA [Suspect]
     Active Substance: PEGFILGRASTIM
     Dosage: 6 MILLIGRAM
     Route: 058
  4. PEGYLATED LIPOSOMAL DOXORUBICIN [Concomitant]
     Active Substance: DOXORUBICIN
     Indication: HIV INFECTION
  5. NEULASTA [Suspect]
     Active Substance: PEGFILGRASTIM
     Dosage: 6 MILLIGRAM
     Route: 058

REACTIONS (2)
  - Accidental exposure to product [Unknown]
  - Device adhesion issue [Unknown]

NARRATIVE: CASE EVENT DATE: 20210126
